FAERS Safety Report 7188228-1 (Version None)
Quarter: 2010Q4

REPORT INFORMATION
  Report Type: 
  Country: None (occurrence: None)
  Receive Date: 20101222
  Receipt Date: 20101213
  Transmission Date: 20110411
  Serious: Yes (Life-Threatening)
  Sender: FDA-Public Use
  Company Number: DE-MYLANLABS-2010S1023227

PATIENT
  Age: 7 Year
  Sex: Female

DRUGS (29)
  1. PREDNISONE [Suspect]
     Indication: B PRECURSOR TYPE ACUTE LEUKAEMIA
     Dosage: INDUCTION CHEMOTHERAPY: PHASE 1
     Route: 048
  2. METHOTREXATE [Suspect]
     Indication: B PRECURSOR TYPE ACUTE LEUKAEMIA
     Dosage: 10-12MG (REGULAR DOSES) THROUGHOUT CHEMOTHERAPY
     Route: 037
  3. METHOTREXATE [Suspect]
     Dosage: TREATMENT INTENSIFICATION
     Route: 042
  4. VINCRISTINE [Suspect]
     Indication: B PRECURSOR TYPE ACUTE LEUKAEMIA
     Dosage: 50% OF STANDARD DOSE (1.5 MG/M2). INDUCTION CHEMOTHERAPY: PHASE 1
     Route: 065
  5. VINCRISTINE [Suspect]
     Dosage: 66% OF STANDARD DOSE (1.5 MG/M2). INDUCTION CHEMOTHERAPY: PHASE 1
     Route: 065
  6. VINCRISTINE [Suspect]
     Dosage: REINDUCTION CHEMOTHERAPY: PHASE 1
     Route: 065
  7. DAUNORUBICIN [Suspect]
     Indication: B PRECURSOR TYPE ACUTE LEUKAEMIA
     Dosage: 50% OF STANDARD DOSE (30 MG/M2). INDUCTION CHEMOTHERAPY: PHASE 1
     Route: 065
  8. DAUNORUBICIN [Suspect]
     Dosage: 66% OF STANDARD DOSE (30 MG/M2). INDUCTION CHEMOTHERAPY: PHASE 1
     Route: 065
  9. ASPARAGINASE [Suspect]
     Indication: B PRECURSOR TYPE ACUTE LEUKAEMIA
     Dosage: 2500 IE/M2; 50% OF STANDARD DOSE (5000 IE/M2). INDUCTION CHEMOTHERAPY: PHASE 1
     Route: 065
  10. ASPARAGINASE [Suspect]
     Dosage: 66% OF STANDARD DOSE (5000 IE/M2). INDUCTION CHEMOTHERAPY: PHASE 1
     Route: 065
  11. ASPARAGINASE [Suspect]
     Dosage: 10 000 IE/M2. REINDUCTION CHEMOTHERAPY: PHASE 1
     Route: 065
  12. CYCLOPHOSPHAMIDE [Suspect]
     Indication: B PRECURSOR TYPE ACUTE LEUKAEMIA
     Dosage: 50% OF STANDARD DOSE (1000 MG/M2). INDUCTION CHEMOTHERAPY: PHASE 2
     Route: 065
  13. CYCLOPHOSPHAMIDE [Suspect]
     Dosage: REINDUCTION CHEMOTHERAPY: PHASE 2
     Route: 065
  14. CYTARABINE [Suspect]
     Indication: B PRECURSOR TYPE ACUTE LEUKAEMIA
     Dosage: 50% OF STANDARD DOSE (75 MG/M2). INDUCTION CHEMOTHERAPY: PHASE 2
     Route: 065
  15. CYTARABINE [Suspect]
     Dosage: 66% OF STANDARD DOSE (75 MG/M2). INDUCTION CHEMOTHERAPY: PHASE 2
     Route: 065
  16. CYTARABINE [Suspect]
     Dosage: 75% OF STANDARD DOSE (75 MG/M2). INDUCTION CHEMOTHERAPY: PHASE 2
     Route: 065
  17. CYTARABINE [Suspect]
     Dosage: REINDUCTION CHEMOTHERAPY: PHASE 2
     Route: 065
  18. MERCAPTOPURINE [Suspect]
     Indication: B PRECURSOR TYPE ACUTE LEUKAEMIA
     Dosage: 50% OF STANDARD DOSE (60 MG/M2). INDUCTION CHEMOTHERAPY: PHASE 2
     Route: 065
  19. MERCAPTOPURINE [Suspect]
     Dosage: 66% OF STANDARD DOSE (60 MG/M2). INDUCTION CHEMOTHERAPY: PHASE 2
     Route: 065
  20. MERCAPTOPURINE [Suspect]
     Dosage: TREATMENT INTENSIFICATION
     Route: 048
  21. DEXAMETHASONE [Suspect]
     Indication: B PRECURSOR TYPE ACUTE LEUKAEMIA
     Dosage: REINDUCTION CHEMOTHERAPY: PHASE 1
     Route: 065
  22. DOXORUBICIN [Suspect]
     Indication: B PRECURSOR TYPE ACUTE LEUKAEMIA
     Dosage: REINDUCTION CHEMOTHERAPY: PHASE 1
     Route: 065
  23. THIOGUANINE [Suspect]
     Indication: B PRECURSOR TYPE ACUTE LEUKAEMIA
     Dosage: REINDUCTION CHEMOTHERAPY: PHASE 2
     Route: 065
  24. IMMUNE GLOBULIN NOS [Concomitant]
     Route: 042
  25. TRIMETHOPRIM [Concomitant]
     Indication: ANTIFUNGAL PROPHYLAXIS
     Route: 065
  26. CASPOFUNGIN [Concomitant]
     Indication: FUNGAL SEPSIS
     Route: 042
  27. AMPHOTERICIN B [Concomitant]
     Indication: FUNGAL SEPSIS
     Route: 042
  28. VORICONAZOLE [Concomitant]
     Indication: FUNGAL SEPSIS
     Route: 042
  29. IMMUNE GLOBULIN NOS [Concomitant]
     Route: 058

REACTIONS (7)
  - CANDIDA SEPSIS [None]
  - ENCEPHALITIC INFECTION [None]
  - GASTROENTERITIS [None]
  - LUNG INFECTION [None]
  - NEUTROPENIA [None]
  - PNEUMONIA [None]
  - SUBCLAVIAN VEIN THROMBOSIS [None]
